FAERS Safety Report 13430043 (Version 1)
Quarter: 2017Q2

REPORT INFORMATION
  Report Type: Spontaneous
  Country: BR (occurrence: BR)
  Receive Date: 20170412
  Receipt Date: 20170412
  Transmission Date: 20170830
  Serious: Yes (Life-Threatening, Other)
  Sender: FDA-Public Use
  Company Number: PHHY2017BR049538

PATIENT
  Age: 52 Year
  Sex: Female

DRUGS (2)
  1. FRONTAL [Concomitant]
     Active Substance: ALPRAZOLAM
     Indication: INSOMNIA
     Route: 065
  2. QUETIAPINE SANDOZ [Suspect]
     Active Substance: QUETIAPINE
     Indication: INSOMNIA
     Dosage: 1 DF, QD
     Route: 048
     Dates: start: 20160607

REACTIONS (6)
  - Mental impairment [Unknown]
  - Peripheral swelling [Unknown]
  - Irritability [Unknown]
  - Somnolence [Unknown]
  - Gastrointestinal disorder [Unknown]
  - Blood cholesterol increased [Unknown]
